FAERS Safety Report 6506493-8 (Version None)
Quarter: 2009Q4

REPORT INFORMATION
  Report Type: 
  Country: None (occurrence: None)
  Receive Date: 20091216
  Receipt Date: 20091203
  Transmission Date: 20100525
  Serious: Yes (Other)
  Sender: FDA-Public Use
  Company Number: 2009-5064

PATIENT
  Age: 64 Year
  Sex: Male

DRUGS (9)
  1. APO-GO PFS (APO-GO) (APOMORPHINE HYDROCHLORIDE) (APOMORPHINE HYDROCHOL [Suspect]
     Indication: DRUG USE FOR UNKNOWN INDICATION
     Dosage: 3 MG; 2.5 MG
     Dates: start: 20090619, end: 20090625
  2. APO-GO PFS (APO-GO) (APOMORPHINE HYDROCHLORIDE) (APOMORPHINE HYDROCHOL [Suspect]
     Indication: DRUG USE FOR UNKNOWN INDICATION
     Dosage: 3 MG; 2.5 MG
     Dates: start: 20090626, end: 20090727
  3. MOTILIUM RX (DOMPERIDONE) [Concomitant]
  4. BECLAZONE CFC-FREE INHALER (BECLOMETASONE) [Concomitant]
  5. ELDERPRYL (SELEGILINE) [Concomitant]
  6. ZIMOVANE (ZOPICLONE) [Concomitant]
  7. SINEMET [Concomitant]
  8. SINEMET CR [Concomitant]
  9. LYRICA [Concomitant]

REACTIONS (3)
  - ABNORMAL BEHAVIOUR [None]
  - COGNITIVE DISORDER [None]
  - SOMNOLENCE [None]
